FAERS Safety Report 9723132 (Version 1)
Quarter: 2013Q4

REPORT INFORMATION
  Report Type: Spontaneous
  Country: US (occurrence: None)
  Receive Date: 20131127
  Receipt Date: 20131127
  Transmission Date: 20140711
  Serious: No
  Sender: FDA-Public Use
  Company Number: None

PATIENT
  Age: 35 Year
  Sex: Female
  Weight: 140 kg

DRUGS (9)
  1. DOXYCYCLINE HYCLATE CAPSULES 100 MG [Suspect]
     Indication: INFECTION PROPHYLAXIS
     Dosage: 1 PILL
     Route: 048
     Dates: start: 20131112, end: 20131113
  2. NEXIUM [Concomitant]
  3. HYDROCODONE/ACEIMETAPHEN [Concomitant]
  4. VOLTAREN GEL [Concomitant]
  5. CYCLOBENZAPRINE [Concomitant]
  6. MULTIVITAMIN [Concomitant]
  7. CRANBERRY PILLS [Concomitant]
  8. B12 COMPLEX VITAMIN [Concomitant]
  9. METAMUCIL [Concomitant]

REACTIONS (10)
  - Nausea [None]
  - Migraine [None]
  - Dizziness [None]
  - Diplopia [None]
  - Disorientation [None]
  - Impaired driving ability [None]
  - Dysstasia [None]
  - Gait disturbance [None]
  - Speech disorder [None]
  - Visual impairment [None]
